FAERS Safety Report 10015024 (Version 1)
Quarter: 2014Q1

REPORT INFORMATION
  Report Type: Spontaneous
  Country: US (occurrence: US)
  Receive Date: 20140317
  Receipt Date: 20140317
  Transmission Date: 20141002
  Serious: Yes (Other)
  Sender: FDA-Public Use
  Company Number: US-009507513-1403USA007059

PATIENT
  Age: 50 Year
  Sex: Female

DRUGS (2)
  1. JANUVIA [Suspect]
     Indication: TYPE 2 DIABETES MELLITUS
     Dosage: 1 TABLET, QD
     Route: 048
     Dates: start: 201310, end: 201310
  2. LATUDA [Concomitant]
     Indication: DEPRESSION

REACTIONS (1)
  - Dizziness [Recovered/Resolved with Sequelae]
